FAERS Safety Report 21543803 (Version 1)
Quarter: 2022Q4

REPORT INFORMATION
  Report Type: Spontaneous
  Country: US (occurrence: US)
  Receive Date: 20221102
  Receipt Date: 20221102
  Transmission Date: 20230113
  Serious: Yes (Other)
  Sender: FDA-Public Use
  Company Number: US-BRISTOL-MYERS SQUIBB COMPANY-2022-129921

PATIENT
  Age: 66 Year
  Sex: Female

DRUGS (4)
  1. REVLIMID [Suspect]
     Active Substance: LENALIDOMIDE
     Indication: Plasma cell myeloma
     Dosage: TAKE (1) CAPSULE DAILY FOR (14) DAYS AND THEN OFF FOR (7) DAYS
     Route: 048
     Dates: start: 20220907, end: 20220920
  2. REVLIMID [Suspect]
     Active Substance: LENALIDOMIDE
     Dosage: (21) DAYS AND THEN OFF FOR (7) DAYS
     Route: 048
     Dates: start: 20220927, end: 20221017
  3. ELIQUIS [Suspect]
     Active Substance: APIXABAN
     Indication: Product used for unknown indication
     Route: 065
     Dates: start: 20220907
  4. ACYCLOVIR [Concomitant]
     Active Substance: ACYCLOVIR
     Indication: Product used for unknown indication
     Dates: start: 20220907

REACTIONS (4)
  - Cerebrovascular accident [Unknown]
  - Inappropriate schedule of product administration [Unknown]
  - Confusional state [Unknown]
  - Off label use [Unknown]

NARRATIVE: CASE EVENT DATE: 20220927
